FAERS Safety Report 7472663-8 (Version None)
Quarter: 2011Q2

REPORT INFORMATION
  Report Type: 
  Country: None (occurrence: None)
  Receive Date: 20110502
  Receipt Date: 20110418
  Transmission Date: 20111010
  Serious: Yes (Hospitalization)
  Sender: FDA-Public Use
  Company Number: 031363

PATIENT
  Sex: Female

DRUGS (1)
  1. KEPPRA [Suspect]
     Indication: CONVULSION PROPHYLAXIS
     Dosage: 500 MG BID ORAL
     Route: 048
     Dates: start: 20110101, end: 20110325

REACTIONS (2)
  - OFF LABEL USE [None]
  - BONE MARROW FAILURE [None]
